FAERS Safety Report 5383091-3 (Version None)
Quarter: 2007Q2

REPORT INFORMATION
  Report Type: 
  Country: None (occurrence: None)
  Receive Date: 20070629
  Receipt Date: 20061101
  Transmission Date: 20071010
  Serious: Yes (Hospitalization)
  Sender: FDA-Public Use
  Company Number: US200611000195

PATIENT
  Sex: Female

DRUGS (9)
  1. HUMALOG [Suspect]
     Indication: BLOOD GLUCOSE INCREASED
     Dosage: SLIDING SCALE
     Dates: start: 20061030
  2. HUMALOG [Suspect]
     Indication: BLOOD GLUCOSE INCREASED
     Dosage: SLIDING SCALE
     Dates: start: 20051220, end: 20060208
  3. HUMULIN 70/30 [Suspect]
     Indication: DIABETES MELLITUS
     Dosage: 35 U
     Dates: start: 19980101
  4. ACTOS /USA/ (PIOGLITAZONE HYDROCHLORIDE) [Concomitant]
  5. BYETTA [Concomitant]
  6. LANTUS [Concomitant]
  7. ZOCOR [Concomitant]
  8. VITAMIN E [Concomitant]
  9. VITAMIN B6 [Concomitant]

REACTIONS (8)
  - ANOREXIA [None]
  - ANXIETY [None]
  - BLOOD CHOLESTEROL ABNORMAL [None]
  - CHEST PAIN [None]
  - DECREASED APPETITE [None]
  - MALAISE [None]
  - NAUSEA [None]
  - OVERWEIGHT [None]
